FAERS Safety Report 23986029 (Version 2)
Quarter: 2024Q2

REPORT INFORMATION
  Report Type: Spontaneous
  Country: US (occurrence: US)
  Receive Date: 20240618
  Receipt Date: 20240621
  Transmission Date: 20240716
  Serious: No
  Sender: FDA-Public Use
  Company Number: US-BAYER-2024A085611

PATIENT
  Age: 53 Year
  Sex: Female

DRUGS (2)
  1. CLIMARA [Suspect]
     Active Substance: ESTRADIOL
     Dosage: 0.025/WEEK
     Route: 062
     Dates: start: 20240502
  2. PROGESTERONE [Concomitant]
     Active Substance: PROGESTERONE
     Indication: Postmenopause
     Dosage: 100 MG
     Route: 048
     Dates: start: 20240502

REACTIONS (1)
  - Product adhesion issue [Unknown]
